FAERS Safety Report 5514330-3 (Version None)
Quarter: 2007Q4

REPORT INFORMATION
  Report Type: 
  Country: None (occurrence: None)
  Receive Date: 20071113
  Receipt Date: 20070417
  Transmission Date: 20080405
  Serious: No
  Sender: FDA-Public Use
  Company Number: A0647626A

PATIENT
  Age: 86 Year
  Sex: Female

DRUGS (8)
  1. COREG [Suspect]
     Dosage: 3.125MG TWICE PER DAY
     Route: 048
     Dates: start: 20060909
  2. LASIX [Suspect]
  3. LOPRESSOR [Suspect]
     Dates: start: 20060930, end: 20061001
  4. PLAVIX [Concomitant]
  5. COZAAR [Concomitant]
  6. PANDEL CREAM [Concomitant]
  7. ALDACTONE [Concomitant]
  8. XANAX [Concomitant]

REACTIONS (5)
  - COUGH [None]
  - DYSPNOEA [None]
  - JOINT SWELLING [None]
  - OEDEMA PERIPHERAL [None]
  - PRURITUS [None]
